FAERS Safety Report 7370171-6 (Version None)
Quarter: 2011Q1

REPORT INFORMATION
  Report Type: 
  Country: None (occurrence: None)
  Receive Date: 20110323
  Receipt Date: 20100729
  Transmission Date: 20110831
  Serious: No
  Sender: FDA-Public Use
  Company Number: US-ASTRAZENECA-2010SE16623

PATIENT
  Sex: Male

DRUGS (5)
  1. ZESTRIL [Suspect]
     Route: 048
     Dates: end: 20090101
  2. ZESTRIL [Suspect]
     Route: 048
     Dates: end: 20090101
  3. ZESTRIL [Suspect]
     Route: 048
     Dates: end: 20090101
  4. ZESTRIL [Suspect]
     Route: 048
  5. ZESTRIL [Suspect]
     Route: 048

REACTIONS (3)
  - DRUG INEFFECTIVE [None]
  - HEADACHE [None]
  - BLOOD PRESSURE INCREASED [None]
